FAERS Safety Report 7658453-1 (Version None)
Quarter: 2011Q3

REPORT INFORMATION
  Report Type: 
  Country: None (occurrence: None)
  Receive Date: 20110805
  Receipt Date: 20110803
  Transmission Date: 20111222
  Serious: No
  Sender: FDA-Public Use
  Company Number: US-PFIZER INC-2011178021

PATIENT
  Sex: Male
  Weight: 72.562 kg

DRUGS (7)
  1. ALCOHOL [Interacting]
     Dosage: UNK
  2. LYRICA [Suspect]
     Indication: NECK PAIN
     Dosage: 50 MG, 2X/DAY
     Route: 048
     Dates: start: 20110710
  3. LYRICA [Interacting]
     Dosage: 75 MG, 2X/DAY
     Route: 048
     Dates: end: 20110803
  4. FLONASE [Concomitant]
     Indication: SNEEZING
  5. ALLEGRA [Concomitant]
     Indication: ALLERGY TO ANIMAL
     Dosage: UNK
  6. ALLEGRA [Concomitant]
     Indication: SNEEZING
  7. FLONASE [Concomitant]
     Indication: ALLERGY TO ANIMAL
     Dosage: ONE PUFF IN EACH NOSTRIL ONE TIME A DAY
     Route: 045

REACTIONS (3)
  - DRUG INTERACTION [None]
  - VOMITING [None]
  - MALAISE [None]
